FAERS Safety Report 7736825-4 (Version None)
Quarter: 2011Q3

REPORT INFORMATION
  Report Type: 
  Country: None (occurrence: None)
  Receive Date: 20110908
  Receipt Date: 20110908
  Transmission Date: 20111222
  Serious: Yes (Death, Life-Threatening, Hospitalization, Other)
  Sender: FDA-Public Use
  Company Number: None

PATIENT
  Age: 20 Year
  Sex: Male
  Weight: 90.718 kg

DRUGS (2)
  1. RISPERDAL, CONSTA, SEROQUEL,ZYPR [Concomitant]
  2. ACCUTANE [Suspect]
     Dosage: ANY
     Route: 048

REACTIONS (17)
  - TARDIVE DYSKINESIA [None]
  - BIPOLAR DISORDER [None]
  - SCHIZOPHRENIA [None]
  - NERVOUS SYSTEM DISORDER [None]
  - GYNAECOMASTIA [None]
  - OBESITY [None]
  - MENTAL DISORDER [None]
  - CONVULSION [None]
  - BLOOD TRIGLYCERIDES INCREASED [None]
  - SKIN DISORDER [None]
  - BONE DISORDER [None]
  - SHOCK [None]
  - WEIGHT INCREASED [None]
  - EUPHORIC MOOD [None]
  - MENTAL IMPAIRMENT [None]
  - EXTRAPYRAMIDAL DISORDER [None]
  - BLOOD GLUCOSE ABNORMAL [None]
